FAERS Safety Report 8885893 (Version 2)
Quarter: 2014Q2

REPORT INFORMATION
  Report Type: Spontaneous
  Country: US (occurrence: US)
  Receive Date: 20121105
  Receipt Date: 20131024
  Transmission Date: 20141212
  Serious: No
  Sender: FDA-Public Use
  Company Number: US-PFIZER INC-2012269353

PATIENT
  Age: 3 Year
  Sex: Male
  Weight: 22 kg

DRUGS (7)
  1. SOLU-MEDROL [Suspect]
     Indication: BRONCHOSPASM
     Dosage: 20/0.5 MG/ML, ONCE
     Route: 042
     Dates: start: 20120630, end: 2012
  2. SOLU-MEDROL [Suspect]
     Indication: ASTHMA
  3. SOLU-MEDROL [Suspect]
     Indication: COUGH
  4. SOLU-MEDROL [Suspect]
     Indication: HYPOXIA
  5. SOLU-MEDROL [Suspect]
     Indication: RESPIRATORY DISORDER
  6. ALBUTEROL [Concomitant]
     Indication: RESPIRATORY DISORDER
     Dosage: 2.5MG/3ML, AS NEEDED
  7. ATROVENT [Concomitant]
     Indication: RESPIRATORY DISORDER
     Dosage: 0.5 MG, EVERY 4 HRS

REACTIONS (1)
  - Urticaria [Recovered/Resolved]
